FAERS Safety Report 9448582 (Version 1)
Quarter: 2013Q3

REPORT INFORMATION
  Report Type: Spontaneous
  Country: JP (occurrence: JP)
  Receive Date: 20130808
  Receipt Date: 20130808
  Transmission Date: 20140515
  Serious: Yes (Hospitalization)
  Sender: FDA-Public Use
  Company Number: JP-BAXTER-2013BAX030204

PATIENT
  Sex: Male
  Weight: 79.7 kg

DRUGS (2)
  1. DIANEAL-N PD-4 1.5 PD SOLUTION [Suspect]
     Indication: DIABETIC NEPHROPATHY
     Route: 033
     Dates: start: 201005
  2. EXTRANEAL PD SOLUTION [Suspect]
     Indication: DIABETIC NEPHROPATHY
     Route: 033
     Dates: start: 20110310

REACTIONS (4)
  - Fall [Unknown]
  - Lumbar vertebral fracture [Recovered/Resolved]
  - Joint dislocation [Not Recovered/Not Resolved]
  - Femoral neck fracture [Not Recovered/Not Resolved]
